FAERS Safety Report 9520772 (Version 1)
Quarter: 2013Q1

REPORT INFORMATION
  Report Type: Spontaneous
  Country: US (occurrence: None)
  Receive Date: 20130305
  Receipt Date: 20130305
  Transmission Date: 20140127
  Serious: Yes (Other)
  Sender: FDA-Public Use
  Company Number: 163-21880-12070368

PATIENT
  Age: 63 Year
  Sex: Male
  Weight: 63.05 kg

DRUGS (4)
  1. REVLIMID (LENALIDOMIDE) (CAPSULES) [Suspect]
     Indication: PLASMA CELL MYELOMA
     Dosage: 25 MG, 1 IN 1 D,  PO
     Route: 048
     Dates: start: 201008
  2. VASOTEC (ENALAPRIL MALEATE) [Concomitant]
  3. CELEXA (CITALOPRAM HYDROBROMIDE) [Concomitant]
  4. VISTARIL (HYDROXYZINE EMBONATE) [Concomitant]

REACTIONS (2)
  - Swelling face [None]
  - Platelet count decreased [None]
